FAERS Safety Report 8765435 (Version 1)
Quarter: 2012Q4

REPORT INFORMATION
  Report Type: 
  Country: US (occurrence: US)
  Receive Date: 20120903
  Receipt Date: 20120903
  Transmission Date: 20130627
  Serious: Yes (Other)
  Sender: FDA-Public Use
  Company Number: US-PFIZER INC-2012213340

PATIENT
  Age: 63 Year
  Sex: Male
  Weight: 127 kg

DRUGS (4)
  1. VIAGRA [Suspect]
     Indication: ERECTILE DYSFUNCTION
     Dosage: 100 mg, UNK
     Route: 048
  2. VIAGRA [Suspect]
     Dosage: UNK
     Route: 048
  3. VIAGRA [Suspect]
     Dosage: 100 mg, UNK
     Route: 048
     Dates: end: 201208
  4. HYDROCHLOROTHIAZIDE [Concomitant]
     Indication: DIURETIC THERAPY
     Dosage: 25 mg, daily

REACTIONS (5)
  - Hypertension [Unknown]
  - Thyroid disorder [Unknown]
  - Counterfeit drug administered [Unknown]
  - Product quality issue [Unknown]
  - Drug ineffective [Unknown]
